FAERS Safety Report 12228432 (Version 1)
Quarter: 2016Q1

REPORT INFORMATION
  Report Type: Spontaneous
  Country: US (occurrence: None)
  Receive Date: 20160330
  Receipt Date: 20160330
  Transmission Date: 20160526
  Serious: Yes (Hospitalization)
  Sender: FDA-Public Use
  Company Number: None

PATIENT
  Age: 52 Year
  Sex: Female
  Weight: 57 kg

DRUGS (4)
  1. LANTUS [Suspect]
     Active Substance: INSULIN GLARGINE
     Indication: TYPE 2 DIABETES MELLITUS
     Route: 058
     Dates: start: 20160325, end: 20160328
  2. INSULIN 70/30 [Concomitant]
     Active Substance: INSULIN HUMAN
  3. INSULIN REGULAR [Concomitant]
     Active Substance: INSULIN NOS
  4. INSULIN ASPART [Concomitant]
     Active Substance: INSULIN ASPART

REACTIONS (4)
  - Therapy cessation [None]
  - Urticaria [None]
  - Pruritus generalised [None]
  - Throat irritation [None]

NARRATIVE: CASE EVENT DATE: 20160328
